FAERS Safety Report 21753527 (Version 1)
Quarter: 2022Q4

REPORT INFORMATION
  Report Type: Spontaneous
  Country: US (occurrence: US)
  Receive Date: 20221220
  Receipt Date: 20221220
  Transmission Date: 20230113
  Serious: No
  Sender: FDA-Public Use
  Company Number: US-TEVA-2022-US-2835181

PATIENT
  Age: 64 Year
  Sex: Female

DRUGS (1)
  1. COPAXONE [Suspect]
     Active Substance: GLATIRAMER ACETATE
     Indication: Product used for unknown indication
     Dosage: FORM STRENGTH UNKNOWN
     Route: 065

REACTIONS (7)
  - Illness [Unknown]
  - Rhinorrhoea [Unknown]
  - Injection site pain [Unknown]
  - Influenza [Unknown]
  - Injection site scar [Unknown]
  - Product use issue [Unknown]
  - Insurance issue [Unknown]

NARRATIVE: CASE EVENT DATE: 20220101
